FAERS Safety Report 11593257 (Version 2)
Quarter: 2015Q4

REPORT INFORMATION
  Report Type: Spontaneous
  Country: US (occurrence: US)
  Receive Date: 20151005
  Receipt Date: 20151020
  Transmission Date: 20160304
  Serious: Yes (Other)
  Sender: FDA-Public Use
  Company Number: US-PFIZER INC-2015323000

PATIENT
  Age: 31 Year
  Sex: Female

DRUGS (2)
  1. XYLOCAINE HYDROCHLORIDE [Suspect]
     Active Substance: LIDOCAINE HYDROCHLORIDE
     Indication: LOCAL ANAESTHESIA
     Dosage: 1.8 ML, UNK (1: 1,000,000 EPINEPHRINE)
  2. EPINEPHRINE. [Suspect]
     Active Substance: EPINEPHRINE
     Indication: LOCAL ANAESTHESIA
     Dosage: 1: 1,000,000

REACTIONS (4)
  - Strabismus [Recovered/Resolved]
  - Diplopia [Recovered/Resolved]
  - Extraocular muscle paresis [Recovered/Resolved]
  - Dizziness [Recovered/Resolved]
